FAERS Safety Report 5338567-1 (Version None)
Quarter: 2007Q2

REPORT INFORMATION
  Report Type: 
  Country: None (occurrence: None)
  Receive Date: 20070322
  Receipt Date: 20060724
  Transmission Date: 20071010
  Serious: Yes (Other)
  Sender: FDA-Public Use
  Company Number: 200612395BCC

PATIENT
  Age: 19 Year
  Sex: Female
  Weight: 54.4316 kg

DRUGS (3)
  1. MIDOL [Suspect]
     Indication: DRUG USE FOR UNKNOWN INDICATION
     Dosage: 440 MG, TOTAL DAILY, ORAL
     Route: 048
     Dates: start: 20060604
  2. TYLENOL [Suspect]
     Indication: ABDOMINAL PAIN UPPER
  3. TYLENOL [Suspect]
     Indication: HEADACHE

REACTIONS (2)
  - CONVULSION [None]
  - VOMITING [None]
